FAERS Safety Report 6894223-X (Version None)
Quarter: 2010Q3

REPORT INFORMATION
  Report Type: 
  Country: None (occurrence: None)
  Receive Date: 20100802
  Receipt Date: 20100720
  Transmission Date: 20110219
  Serious: Yes (Other)
  Sender: FDA-Public Use
  Company Number: PHHY2010FR45288

PATIENT
  Age: 42 Year
  Sex: Female
  Weight: 47 kg

DRUGS (5)
  1. RASILEZ HCT [Suspect]
     Indication: HYPERTENSION
     Dosage: 300/12.5 MG ONCE PER DAY
     Route: 048
     Dates: start: 20100619, end: 20100623
  2. ISOPTIN [Concomitant]
  3. ALDACTONE [Concomitant]
  4. HYPERIUM [Concomitant]
     Dosage: UNK
  5. MEDIATENSYL [Concomitant]
     Dosage: UNK

REACTIONS (2)
  - GLOMERULAR FILTRATION RATE DECREASED [None]
  - RENAL FAILURE ACUTE [None]
